FAERS Safety Report 15918251 (Version 1)
Quarter: 2019Q1

REPORT INFORMATION
  Report Type: Spontaneous
  Country: CN (occurrence: CN)
  Receive Date: 20190205
  Receipt Date: 20190205
  Transmission Date: 20190417
  Serious: Yes (Hospitalization, Other)
  Sender: FDA-Public Use
  Company Number: CN-BAYER-2019-020445

PATIENT
  Age: 2 Year
  Sex: Male
  Weight: 13 kg

DRUGS (8)
  1. BAYASPIRIN 100 MG [Suspect]
     Active Substance: ASPIRIN
     Indication: KAWASAKI^S DISEASE
     Dosage: 50 MG, QD
     Route: 048
     Dates: start: 20180803, end: 20181212
  2. BAYASPIRIN 100 MG [Suspect]
     Active Substance: ASPIRIN
     Indication: KAWASAKI^S DISEASE
     Dosage: 50 MG, QD
     Route: 048
     Dates: start: 20181213
  3. CLOPIDOGREL SULFATE [Suspect]
     Active Substance: CLOPIDOGREL BISULFATE
     Indication: KAWASAKI^S DISEASE
     Dosage: 12.5 MG, QD
     Route: 048
     Dates: start: 20181029, end: 20181212
  4. CLOPIDOGREL SULFATE [Suspect]
     Active Substance: CLOPIDOGREL BISULFATE
     Indication: KAWASAKI^S DISEASE
     Dosage: 12.5 MG, QD
     Route: 048
     Dates: start: 20181213
  5. WARFARIN SODIUM. [Suspect]
     Active Substance: WARFARIN SODIUM
     Indication: KAWASAKI^S DISEASE
     Dosage: 1.6 MG, QD
     Route: 048
     Dates: start: 20181029, end: 20181212
  6. CLOPIDOGREL SULFATE [Suspect]
     Active Substance: CLOPIDOGREL BISULFATE
     Indication: KAWASAKI^S DISEASE
     Dosage: 2.5 MG, QD
     Route: 048
     Dates: start: 20180803, end: 20181029
  7. WARFARIN SODIUM. [Suspect]
     Active Substance: WARFARIN SODIUM
     Indication: KAWASAKI^S DISEASE
     Dosage: 1.25 MG, QD
     Dates: start: 20180803, end: 20181029
  8. WARFARIN SODIUM. [Suspect]
     Active Substance: WARFARIN SODIUM
     Indication: KAWASAKI^S DISEASE
     Dosage: 1.25 MG, QD
     Route: 048
     Dates: start: 20181213

REACTIONS (2)
  - Coagulopathy [Recovering/Resolving]
  - Gingival bleeding [Recovering/Resolving]

NARRATIVE: CASE EVENT DATE: 20181210
